FAERS Safety Report 8337957-2 (Version None)
Quarter: 2012Q2

REPORT INFORMATION
  Report Type: 
  Country: None (occurrence: None)
  Receive Date: 20120504
  Receipt Date: 20120427
  Transmission Date: 20120825
  Serious: Yes (Other)
  Sender: FDA-Public Use
  Company Number: US-JNJFOC-20120502874

PATIENT
  Sex: Male
  Weight: 79.38 kg

DRUGS (2)
  1. LYRICA [Concomitant]
     Indication: BACK PAIN
     Route: 065
  2. DURAGESIC-100 [Suspect]
     Indication: BACK PAIN
     Route: 062

REACTIONS (3)
  - INCORRECT DRUG ADMINISTRATION RATE [None]
  - ADVERSE EVENT [None]
  - PRODUCT QUALITY ISSUE [None]
